FAERS Safety Report 11269972 (Version 2)
Quarter: 2016Q2

REPORT INFORMATION
  Report Type: Spontaneous
  Country: US (occurrence: US)
  Receive Date: 20150714
  Receipt Date: 20160609
  Transmission Date: 20160815
  Serious: Yes (Other)
  Sender: FDA-Public Use
  Company Number: US-TEVA-578320ACC

PATIENT
  Sex: Female

DRUGS (5)
  1. IRON [Concomitant]
     Active Substance: IRON
  2. PARAGARD T 380A [Suspect]
     Active Substance: COPPER
     Indication: CONTRACEPTION
     Route: 015
  3. CLONIDINE. [Concomitant]
     Active Substance: CLONIDINE
  4. DILTIAZEM [Concomitant]
     Active Substance: DILTIAZEM
  5. LOSARTAN POTTASIUM HCTZ [Concomitant]

REACTIONS (2)
  - Embedded device [Not Recovered/Not Resolved]
  - Device dislocation [Recovered/Resolved]
